FAERS Safety Report 7708642-2 (Version None)
Quarter: 2011Q3

REPORT INFORMATION
  Report Type: 
  Country: None (occurrence: None)
  Receive Date: 20110825
  Receipt Date: 20110817
  Transmission Date: 20111222
  Serious: Yes (Hospitalization, Other)
  Sender: FDA-Public Use
  Company Number: US-BAYER-2011-033401

PATIENT
  Age: 53 Year
  Sex: Female

DRUGS (3)
  1. INTERFERON BETA-1B [Suspect]
     Dosage: UNK
  2. INTERFERON BETA-1B [Suspect]
     Indication: SECONDARY PROGRESSIVE MULTIPLE SCLEROSIS
     Dosage: UNK UNK, QOD
     Route: 058
     Dates: start: 20050725, end: 20080114
  3. INTERFERON BETA-1B [Suspect]
     Dosage: 8 MIU, QOD
     Route: 058
     Dates: start: 20080228, end: 20110409

REACTIONS (6)
  - PAIN IN EXTREMITY [None]
  - MOBILITY DECREASED [None]
  - WEIGHT BEARING DIFFICULTY [None]
  - IMPAIRED HEALING [None]
  - INJECTION SITE ERYTHEMA [None]
  - INJECTION SITE NECROSIS [None]
